FAERS Safety Report 18330790 (Version 3)
Quarter: 2020Q4

REPORT INFORMATION
  Report Type: Spontaneous
  Country: US (occurrence: US)
  Receive Date: 20200930
  Receipt Date: 20201021
  Transmission Date: 20210113
  Serious: No
  Sender: FDA-Public Use
  Company Number: US-STRONGBRIDGE BIOPHARMA-2020-STR-000224

PATIENT
  Age: 23 Year
  Sex: Male

DRUGS (1)
  1. KEVEYIS [Suspect]
     Active Substance: DICHLORPHENAMIDE
     Indication: PRODUCT USED FOR UNKNOWN INDICATION
     Dosage: 50 MG, BID
     Route: 048

REACTIONS (12)
  - Dysgeusia [Unknown]
  - Paraesthesia [Unknown]
  - Discomfort [Unknown]
  - Headache [Unknown]
  - Muscular weakness [Unknown]
  - Feeling abnormal [Unknown]
  - COVID-19 [Unknown]
  - Fatigue [Unknown]
  - Tinnitus [Unknown]
  - Diarrhoea [Unknown]
  - Dyspnoea [Unknown]
  - Muscle tightness [Unknown]

NARRATIVE: CASE EVENT DATE: 20200914
